FAERS Safety Report 15195830 (Version 2)
Quarter: 2018Q3

REPORT INFORMATION
  Report Type: Spontaneous
  Country: US (occurrence: US)
  Receive Date: 20180725
  Receipt Date: 20180730
  Transmission Date: 20181010
  Serious: Yes (Other)
  Sender: FDA-Public Use
  Company Number: US-PFIZER INC-2018297725

PATIENT
  Age: 44 Year
  Sex: Female

DRUGS (4)
  1. NEURONTIN [Suspect]
     Active Substance: GABAPENTIN
     Indication: RHEUMATOID ARTHRITIS
     Dosage: 800 MG, THRICE A DAY
     Route: 048
     Dates: start: 2001
  2. NEURONTIN [Suspect]
     Active Substance: GABAPENTIN
     Dosage: 800 MG, THRICE A DAY
     Route: 048
  3. PREDNISONE. [Concomitant]
     Active Substance: PREDNISONE
     Indication: RHEUMATOID ARTHRITIS
     Dosage: UNK
     Dates: start: 1999
  4. NEURONTIN [Suspect]
     Active Substance: GABAPENTIN
     Dosage: 800 MG, TWICE A DAY
     Route: 048

REACTIONS (5)
  - Product use in unapproved indication [Unknown]
  - Fall [Unknown]
  - Overdose [Unknown]
  - Hand fracture [Unknown]
  - Nerve injury [Unknown]

NARRATIVE: CASE EVENT DATE: 2001
